FAERS Safety Report 24056407 (Version 1)
Quarter: 2024Q3

REPORT INFORMATION
  Report Type: Spontaneous
  Country: IT (occurrence: IT)
  Receive Date: 20240705
  Receipt Date: 20240705
  Transmission Date: 20241017
  Serious: Yes (Other)
  Sender: TEVA
  Company Number: None

PATIENT
  Age: 62 Year
  Sex: Female

DRUGS (5)
  1. OXALIPLATIN [Suspect]
     Active Substance: OXALIPLATIN
     Indication: Colon cancer
     Dosage: START OF THERAPY 11/20/2023 - 6TH CYCLE
     Route: 042
     Dates: start: 20240214, end: 20240214
  2. FLUOROURACIL [Suspect]
     Active Substance: FLUOROURACIL
     Indication: Colon cancer
     Dosage: 5-FLUOROURACIL START OF THERAPY 11/20/2023 - 6TH CYCLE - BOLUS INFUSION
     Route: 042
     Dates: start: 20240214, end: 20240214
  3. FLUOROURACIL [Suspect]
     Active Substance: FLUOROURACIL
     Indication: Colon cancer
     Dosage: 5-FLUOROURACIL START OF THERAPY 20/11/2023 - 6TH CYCLE - CONTINUOUS INFUSION FOR 46 HOURS
     Route: 042
     Dates: start: 20240214, end: 20240216
  4. LEVOLEUCOVORIN [Concomitant]
     Active Substance: LEVOLEUCOVORIN
     Indication: Product used for unknown indication
     Route: 065
  5. BEVACIZUMAB [Suspect]
     Active Substance: BEVACIZUMAB
     Indication: Colon cancer
     Dosage: START OF THERAPY 11/20/2023 - 6TH CYCLE
     Route: 042
     Dates: start: 20240214, end: 20240214

REACTIONS (2)
  - Thrombocytopenia [Recovering/Resolving]
  - Haemoglobin decreased [Recovering/Resolving]

NARRATIVE: CASE EVENT DATE: 20240228
